FAERS Safety Report 8154507-4 (Version None)
Quarter: 2012Q1

REPORT INFORMATION
  Report Type: 
  Country: None (occurrence: None)
  Receive Date: 20120221
  Receipt Date: 20120213
  Transmission Date: 20120608
  Serious: Yes (Hospitalization)
  Sender: FDA-Public Use
  Company Number: DE-ABBOTT-12P-062-0904790-00

PATIENT
  Sex: Female
  Weight: 69 kg

DRUGS (8)
  1. PANTOPRAZOLE [Concomitant]
     Indication: PRODUCT USED FOR UNKNOWN INDICATION
  2. METOPROLOL TARTRATE [Concomitant]
     Indication: PRODUCT USED FOR UNKNOWN INDICATION
  3. ASPIRIN [Concomitant]
     Indication: PRODUCT USED FOR UNKNOWN INDICATION
  4. PREDNISOLONE [Suspect]
     Indication: THYROID DISORDER
     Dosage: 50 MG DAILY
     Dates: start: 20111216
  5. PREDNISOLONE [Suspect]
     Dates: start: 20111220
  6. CALCILAC KT [Concomitant]
     Indication: PRODUCT USED FOR UNKNOWN INDICATION
  7. HUMIRA [Suspect]
     Indication: PSORIATIC ARTHROPATHY
     Route: 058
     Dates: start: 20110421, end: 20111110
  8. ALENDRON [Concomitant]
     Indication: PRODUCT USED FOR UNKNOWN INDICATION

REACTIONS (9)
  - GENERAL PHYSICAL HEALTH DETERIORATION [None]
  - BASEDOW'S DISEASE [None]
  - DIABETES MELLITUS [None]
  - DECREASED APPETITE [None]
  - THYROID NEOPLASM [None]
  - WEIGHT DECREASED [None]
  - HYPERTHYROIDISM [None]
  - INFLAMMATORY MARKER INCREASED [None]
  - THYROIDITIS SUBACUTE [None]
